FAERS Safety Report 9568400 (Version 2)
Quarter: 2013Q3

REPORT INFORMATION
  Report Type: Spontaneous
  Country: US (occurrence: US)
  Receive Date: 20130930
  Receipt Date: 20130930
  Transmission Date: 20140515
  Serious: No
  Sender: FDA-Public Use
  Company Number: US-AMGEN-USASP2013056674

PATIENT
  Age: 68 Year
  Sex: Female
  Weight: 86.17 kg

DRUGS (19)
  1. ENBREL [Suspect]
     Indication: PRODUCT USED FOR UNKNOWN INDICATION
     Dosage: 50 MG, QWK
     Route: 058
  2. VYTORIN [Concomitant]
     Dosage: 10-40MG, UNK
  3. PLAVIX [Concomitant]
     Dosage: 75 MG, UNK
  4. CARTIA XT [Concomitant]
     Dosage: 120/24 HOUR
  5. FUROSEMIDE [Concomitant]
     Dosage: 40 MG, UNK
  6. ISOSORB MONO [Concomitant]
     Dosage: 10 MG, UNK
  7. POTASSIUM CHLORIDE [Concomitant]
     Dosage: 10 MEQ, UNK
  8. CITALOPRAM [Concomitant]
     Dosage: 20 MG, UNK
  9. PREDNISONE [Concomitant]
     Dosage: 5 MG, UNK
  10. METOPROLOL [Concomitant]
     Dosage: 50 MG, UNK
  11. RIFAMPIN [Concomitant]
     Dosage: 150 MG, UNK
  12. COQ 10 [Concomitant]
     Dosage: UNK
  13. PROAIR HFA [Concomitant]
     Dosage: UNK
  14. PREVACID [Concomitant]
     Dosage: 15 MG, UNK
  15. NITROSTAT [Concomitant]
     Dosage: 0.6 MG, UNK
     Route: 060
  16. FOLIC ACID [Concomitant]
     Dosage: UNK
  17. ASPIRIN [Concomitant]
     Dosage: 81 MG, UNK
  18. ADVAIR [Concomitant]
     Dosage: 100/50, UNK
  19. TYLENOL COLD                       /00446801/ [Concomitant]
     Dosage: UNK

REACTIONS (6)
  - Fatigue [Unknown]
  - Headache [Unknown]
  - Pruritus generalised [Unknown]
  - Vision blurred [Unknown]
  - Injection site erythema [Unknown]
  - Injection site reaction [Unknown]
